FAERS Safety Report 5416194-5 (Version None)
Quarter: 2007Q3

REPORT INFORMATION
  Report Type: 
  Country: None (occurrence: None)
  Receive Date: 20070718
  Receipt Date: 20060714
  Transmission Date: 20080115
  Serious: Yes (Hospitalization, Other)
  Sender: FDA-Public Use
  Company Number: 2006008349

PATIENT
  Age: 56 Year
  Sex: Female
  Weight: 81.6475 kg

DRUGS (7)
  1. CELEBREX [Suspect]
     Indication: ARTHRITIS
     Dosage: 200 MG (200 MG, 1 IN 1 D)
     Dates: start: 20010301, end: 20010501
  2. GLUCOPHAGE [Concomitant]
  3. LEVOXYL [Concomitant]
  4. LIPITOR [Concomitant]
  5. CALCIUM (CALCIUM) [Concomitant]
  6. MULTIVITAMINS AND IRON (MULTIVITAMINS AND IRON) [Concomitant]
  7. PEPCID AC [Concomitant]

REACTIONS (1)
  - CEREBROVASCULAR ACCIDENT [None]
